FAERS Safety Report 9382511 (Version 1)
Quarter: 2013Q3

REPORT INFORMATION
  Report Type: Spontaneous
  Country: IE (occurrence: IE)
  Receive Date: 20130703
  Receipt Date: 20130703
  Transmission Date: 20140515
  Serious: Yes (Other)
  Sender: FDA-Public Use
  Company Number: IE-JNJFOC-20130207585

PATIENT
  Age: 52 Year
  Sex: Female

DRUGS (4)
  1. SIMPONI [Suspect]
     Indication: RHEUMATOID ARTHRITIS
     Route: 058
     Dates: start: 20110407
  2. SIMPONI [Suspect]
     Indication: RHEUMATOID ARTHRITIS
     Dosage: DEC-YEAR NOT PROVIDED
     Route: 058
     Dates: start: 201106
  3. CATAFLAM D [Concomitant]
     Indication: ARTHRALGIA
     Route: 065
     Dates: start: 201204
  4. PROTIUM [Concomitant]
     Route: 065

REACTIONS (2)
  - Rash [Unknown]
  - Pruritus [Not Recovered/Not Resolved]
